FAERS Safety Report 6479647-7 (Version None)
Quarter: 2009Q4

REPORT INFORMATION
  Report Type: 
  Country: None (occurrence: None)
  Receive Date: 20091208
  Receipt Date: 20091126
  Transmission Date: 20100525
  Serious: Yes (Other)
  Sender: FDA-Public Use
  Company Number: JP-SANOFI-AVENTIS-2009SA002906

PATIENT
  Age: 53 Year
  Sex: Male

DRUGS (5)
  1. MYSLEE [Suspect]
     Indication: PANIC DISORDER
     Route: 048
     Dates: end: 20070101
  2. MYSLEE [Suspect]
     Indication: INSOMNIA
     Route: 048
     Dates: end: 20070101
  3. PAXIL [Concomitant]
     Indication: DRUG USE FOR UNKNOWN INDICATION
     Route: 065
  4. DOGMATYL [Concomitant]
     Indication: DRUG USE FOR UNKNOWN INDICATION
     Route: 065
  5. LIMAS [Concomitant]
     Indication: DRUG USE FOR UNKNOWN INDICATION
     Route: 065

REACTIONS (4)
  - AGGRESSION [None]
  - AMNESIA [None]
  - SELF INJURIOUS BEHAVIOUR [None]
  - SOMNAMBULISM [None]
